FAERS Safety Report 8392398-7 (Version None)
Quarter: 2012Q2

REPORT INFORMATION
  Report Type: 
  Country: None (occurrence: None)
  Receive Date: 20120529
  Receipt Date: 20120514
  Transmission Date: 20120825
  Serious: Yes (Other)
  Sender: FDA-Public Use
  Company Number: CA-ROCHE-1071082

PATIENT
  Sex: Female

DRUGS (6)
  1. XELODA [Suspect]
     Indication: BREAST CANCER METASTATIC
     Route: 048
  2. DOCETAXEL [Suspect]
     Indication: BREAST CANCER METASTATIC
     Route: 042
  3. DOCETAXEL [Suspect]
     Route: 042
  4. CELECOXIB [Concomitant]
     Route: 048
  5. DEXAMETHASONE [Concomitant]
     Indication: PROPHYLAXIS
     Route: 048
  6. DOCETAXEL [Suspect]
     Dosage: AT 8 WEEKS
     Route: 042

REACTIONS (19)
  - LEUKOPENIA [None]
  - FEBRILE NEUTROPENIA [None]
  - FATIGUE [None]
  - PERIPHERAL SENSORY NEUROPATHY [None]
  - DIARRHOEA [None]
  - INFECTION [None]
  - MUSCULAR WEAKNESS [None]
  - THROMBOSIS [None]
  - VOMITING [None]
  - DECREASED APPETITE [None]
  - DYSPEPSIA [None]
  - DYSPNOEA [None]
  - ANAEMIA [None]
  - PALMAR-PLANTAR ERYTHRODYSAESTHESIA SYNDROME [None]
  - NAIL DISORDER [None]
  - VISION BLURRED [None]
  - NAUSEA [None]
  - THROMBOCYTOPENIA [None]
  - MUCOSAL INFLAMMATION [None]
